FAERS Safety Report 7080049-3 (Version None)
Quarter: 2010Q4

REPORT INFORMATION
  Report Type: 
  Country: None (occurrence: None)
  Receive Date: 20101102
  Receipt Date: 20100826
  Transmission Date: 20110411
  Serious: No
  Sender: FDA-Public Use
  Company Number: US-ABBOTT-10P-163-0666597-00

PATIENT
  Sex: Female

DRUGS (4)
  1. BIAXIN [Suspect]
     Indication: PRODUCT USED FOR UNKNOWN INDICATION
  2. VICODIN [Concomitant]
     Indication: PAIN
  3. XANAX [Concomitant]
     Indication: ANXIETY
     Dosage: EVERY 8 HOURS
  4. VENTOLIN [Concomitant]
     Indication: ASTHMA

REACTIONS (1)
  - VOMITING [None]
